FAERS Safety Report 5312460-2 (Version None)
Quarter: 2007Q2

REPORT INFORMATION
  Report Type: 
  Country: None (occurrence: None)
  Receive Date: 20070430
  Receipt Date: 20061226
  Transmission Date: 20071010
  Serious: No
  Sender: FDA-Public Use
  Company Number: 2006UW28550

PATIENT
  Age: 56 Year
  Sex: Female
  Weight: 81.6 kg

DRUGS (6)
  1. NEXIUM [Suspect]
     Indication: GASTROOESOPHAGEAL REFLUX DISEASE
     Route: 048
     Dates: start: 20060501
  2. NEXIUM [Suspect]
     Route: 048
     Dates: start: 20060501
  3. LEXAPRO [Concomitant]
  4. VITAMIN CAP [Concomitant]
  5. CALCIUM CHLORIDE [Concomitant]
  6. ACIDOPHILUS [Concomitant]

REACTIONS (1)
  - GASTROOESOPHAGEAL REFLUX DISEASE [None]
